FAERS Safety Report 25102140 (Version 1)
Quarter: 2025Q1

REPORT INFORMATION
  Report Type: Spontaneous
  Country: PT (occurrence: PT)
  Receive Date: 20250320
  Receipt Date: 20250320
  Transmission Date: 20250409
  Serious: Yes (Other)
  Sender: MERCK SHARP & DOHME LLC
  Company Number: None

PATIENT
  Age: 49 Year
  Sex: Male
  Weight: 88 kg

DRUGS (6)
  1. METFORMIN HYDROCHLORIDE\SITAGLIPTIN PHOSPHATE [Interacting]
     Active Substance: METFORMIN HYDROCHLORIDE\SITAGLIPTIN PHOSPHATE
     Indication: Dyslipidaemia
     Dosage: DOSE DESCRIPTION : AT LUNCH; STRENGTH: 50 MG + 1000 MG?DAILY DOSE : 1050 MILLIGRAM?CONCENTRATION:...
  2. AMLODIPINE [Interacting]
     Active Substance: AMLODIPINE BESYLATE
     Dosage: DOSE DESCRIPTION : 10 MILLIGRAM, QD?DAILY DOSE : 10 MILLIGRAM?CONCENTRATION: 10 MILLIGRAM
  3. DAPAGLIFLOZIN PROPANEDIOL\METFORMIN HYDROCHLORIDE [Concomitant]
     Active Substance: DAPAGLIFLOZIN PROPANEDIOL\METFORMIN HYDROCHLORIDE
  4. ATORVASTATIN [Interacting]
     Active Substance: ATORVASTATIN
     Indication: Dyslipidaemia
     Dosage: DOSE DESCRIPTION : 20 MG/DAY?DAILY DOSE : 20 MILLIGRAM?CONCENTRATION: 20 MILLIGRAM
     Route: 048
     Dates: start: 20230728, end: 20240729
  5. GLICLAZIDE [Concomitant]
     Active Substance: GLICLAZIDE
     Dates: start: 202408
  6. CANDESARTAN [Concomitant]
     Active Substance: CANDESARTAN
     Dosage: BK [BREACKFAST]

REACTIONS (2)
  - Hepatic function abnormal [Recovering/Resolving]
  - Myopathy [Recovered/Resolved]

NARRATIVE: CASE EVENT DATE: 20240501
